FAERS Safety Report 13945359 (Version 1)
Quarter: 2017Q3

REPORT INFORMATION
  Report Type: Spontaneous
  Country: GB (occurrence: GB)
  Receive Date: 20170907
  Receipt Date: 20170907
  Transmission Date: 20171128
  Serious: Yes (Hospitalization, Other)
  Sender: FDA-Public Use
  Company Number: GB-BAXTER-2017BAX031218

PATIENT
  Sex: Male

DRUGS (7)
  1. IFOSFAMIDE INJECTION 2G [Suspect]
     Active Substance: IFOSFAMIDE
     Route: 065
     Dates: start: 20151111, end: 20151111
  2. CISPLATIN. [Suspect]
     Active Substance: CISPLATIN
     Indication: NONGERMINOMATOUS GERM CELL TUMOUR OF THE CNS
     Route: 065
     Dates: start: 20151002, end: 20151002
  3. ETOPOSIDE. [Suspect]
     Active Substance: ETOPOSIDE
     Route: 065
     Dates: start: 20151021, end: 20151021
  4. CARBOPLATIN. [Suspect]
     Active Substance: CARBOPLATIN
     Indication: NONGERMINOMATOUS GERM CELL TUMOUR OF THE CNS
     Route: 065
     Dates: start: 20151021, end: 20151021
  5. IFOSFAMIDE INJECTION 2G [Suspect]
     Active Substance: IFOSFAMIDE
     Indication: NONGERMINOMATOUS GERM CELL TUMOUR OF THE CNS
     Route: 065
     Dates: start: 20151002, end: 20151002
  6. ETOPOSIDE. [Suspect]
     Active Substance: ETOPOSIDE
     Indication: NONGERMINOMATOUS GERM CELL TUMOUR OF THE CNS
     Route: 065
     Dates: start: 20151002, end: 20151002
  7. CYCLOPHOSPHAMIDE INJECTION 1G [Suspect]
     Active Substance: CYCLOPHOSPHAMIDE
     Indication: NONGERMINOMATOUS GERM CELL TUMOUR OF THE CNS
     Route: 065

REACTIONS (4)
  - Recurrent cancer [Unknown]
  - General physical health deterioration [Unknown]
  - Decorticate posture [Unknown]
  - Encephalopathy [Unknown]

NARRATIVE: CASE EVENT DATE: 20151004
